FAERS Safety Report 9326329 (Version 1)
Quarter: 2013Q2

REPORT INFORMATION
  Report Type: Spontaneous
  Country: AU (occurrence: AU)
  Receive Date: 20130604
  Receipt Date: 20130604
  Transmission Date: 20140414
  Serious: Yes (Hospitalization, Other)
  Sender: FDA-Public Use
  Company Number: AU-ASTRAZENECA-2013SE37657

PATIENT
  Age: 41 Year
  Sex: Female

DRUGS (5)
  1. NEXIUM [Suspect]
     Route: 048
  2. CARBOPLATIN [Suspect]
     Route: 065
  3. VOLTAREN [Suspect]
     Route: 065
  4. PACLITAXEL [Suspect]
     Route: 065
  5. ZOMETA [Suspect]
     Route: 065

REACTIONS (6)
  - Metastases to liver [Unknown]
  - Metastases to lung [Unknown]
  - Metastases to the mediastinum [Unknown]
  - Metastases to lymph nodes [Unknown]
  - Febrile neutropenia [Unknown]
  - Diarrhoea [Unknown]
